FAERS Safety Report 7428935 (Version 8)
Quarter: 2016Q4

REPORT INFORMATION
  Report Type: Report from Study
  Country: CA (occurrence: CA)
  Receive Date: 20100623
  Receipt Date: 20161104
  Transmission Date: 20170207
  Serious: Yes (Other)
  Sender: FDA-Public Use
  Company Number: PHHY2010CA39452

PATIENT
  Age: 63 Year
  Sex: Female

DRUGS (5)
  1. SANDOSTATIN LAR DEPOT [Suspect]
     Active Substance: OCTREOTIDE ACETATE
     Dosage: 20 MG, QMO (EVERY 4 WEEKS)
     Route: 030
  2. NOVOLIN [Concomitant]
     Active Substance: INSULIN HUMAN
     Indication: PRODUCT USED FOR UNKNOWN INDICATION
     Dosage: UNK UNK, BID
     Route: 058
  3. SANDOSTATIN LAR DEPOT [Suspect]
     Active Substance: OCTREOTIDE ACETATE
     Indication: ACROMEGALY
     Dosage: 20 MG, QMO (EVERY 4 WEEKS)
     Route: 030
     Dates: start: 20051129
  4. SANDOSTATIN LAR DEPOT [Suspect]
     Active Substance: OCTREOTIDE ACETATE
     Dosage: 30 MG, QMO (EVERY 4 WEEKS)
     Route: 030
  5. METFORMIN [Concomitant]
     Active Substance: METFORMIN HYDROCHLORIDE
     Indication: PRODUCT USED FOR UNKNOWN INDICATION
     Dosage: 1000 MG, BID
     Route: 065

REACTIONS (14)
  - Hyperhidrosis [Unknown]
  - Discomfort [Unknown]
  - Polyp [Unknown]
  - Fatigue [Unknown]
  - Loss of consciousness [Unknown]
  - Insomnia [Unknown]
  - Abdominal distension [Unknown]
  - Diarrhoea [Unknown]
  - Paraesthesia [Unknown]
  - Blood pressure increased [Unknown]
  - Dizziness [Unknown]
  - Fall [Unknown]
  - Upper limb fracture [Unknown]
  - Stress [Unknown]

NARRATIVE: CASE EVENT DATE: 20150202
